FAERS Safety Report 23211552 (Version 1)
Quarter: 2023Q4

REPORT INFORMATION
  Report Type: Other
  Country: ES (occurrence: ES)
  Receive Date: 20231121
  Receipt Date: 20231121
  Transmission Date: 20240109
  Serious: Yes (Hospitalization)
  Sender: FDA-Public Use
  Company Number: None

PATIENT

DRUGS (9)
  1. OLMESARTAN MEDOXOMIL [Suspect]
     Active Substance: OLMESARTAN MEDOXOMIL
     Indication: Hypertension
     Dosage: 40 MILLIGRAM C/24 H
     Route: 048
     Dates: start: 20200220, end: 20230426
  2. OTILONIUM BROMIDE [Concomitant]
     Active Substance: OTILONIUM BROMIDE
     Indication: Diverticulum intestinal
     Dosage: 40 MILLIGRAM DECOCE
     Route: 048
     Dates: start: 20220408
  3. OMEPRAZOL [OMEPRAZOLE SODIUM] [Concomitant]
     Indication: Dyspepsia
     Dosage: 20 MILLIGRAM DECE
     Route: 048
     Dates: start: 20150914
  4. METAMIZOLE MAGNESIUM [Concomitant]
     Active Substance: METAMIZOLE MAGNESIUM
     Indication: Product used for unknown indication
     Dosage: 575.0 MG A-CE
     Route: 048
     Dates: start: 20200625
  5. ACETAMINOPHEN [Concomitant]
     Active Substance: ACETAMINOPHEN
     Indication: Back pain
     Dosage: 1 GRAM DECE
     Route: 048
     Dates: start: 20131119
  6. DAIVOBET [BETAMETHASONE DIPROPIONATE;CALCIPOTRIOL MONOHYDRATE] [Concomitant]
     Indication: Psoriasis
     Dosage: 1 DOSAGE FORM 1.0 APLIC C/24 H NOC
     Route: 061
     Dates: start: 20160523
  7. CALCIFEDIOL [Concomitant]
     Active Substance: CALCIFEDIOL
     Indication: Vitamin D deficiency
     Dosage: 16000.0 UI C/30 DIAS
     Route: 048
     Dates: start: 20201027
  8. PROLIA [Concomitant]
     Active Substance: DENOSUMAB
     Indication: Osteoporosis
     Dosage: 60 MILLIGRAM
     Route: 058
     Dates: start: 20210924
  9. SIMVASTATIN [Concomitant]
     Active Substance: SIMVASTATIN
     Indication: Dyspepsia
     Dosage: 10.0 MG CE
     Route: 048
     Dates: start: 20201026

REACTIONS (1)
  - Diarrhoea [Recovered/Resolved]

NARRATIVE: CASE EVENT DATE: 20230425
